FAERS Safety Report 25751500 (Version 2)
Quarter: 2025Q3

REPORT INFORMATION
  Report Type: Spontaneous
  Country: TW (occurrence: TW)
  Receive Date: 20250902
  Receipt Date: 20250912
  Transmission Date: 20251021
  Serious: Yes (Death, Life-Threatening, Hospitalization, Other)
  Sender: BAYER HEALTHCARE PHARMACEUTICALS INC.
  Company Number: TW-BAYER-2025A115983

PATIENT
  Age: 68 Year
  Sex: Male

DRUGS (1)
  1. XOFIGO [Suspect]
     Active Substance: RADIUM RA-223 DICHLORIDE
     Indication: Hormone-refractory prostate cancer
     Dates: start: 20250723, end: 20250723

REACTIONS (8)
  - Pneumonia [Fatal]
  - Acute respiratory failure [Fatal]
  - Loss of consciousness [None]
  - Peripheral swelling [None]
  - Hyperkalaemia [None]
  - Abdominal discomfort [None]
  - Hypotension [None]
  - Pyrexia [None]

NARRATIVE: CASE EVENT DATE: 20250101
